FAERS Safety Report 4390661-8 (Version None)
Quarter: 2004Q2

REPORT INFORMATION
  Report Type: 
  Country: None (occurrence: None)
  Receive Date: 20040630
  Receipt Date: 20040616
  Transmission Date: 20050107
  Serious: Yes (Other)
  Sender: FDA-Public Use
  Company Number: BLOC000807

PATIENT
  Age: 57 Year
  Sex: Female

DRUGS (1)
  1. MYOBLOC [Suspect]
     Indication: BLEPHAROSPASM
     Dosage: 10,000 U INTRAMUSCULAR
     Route: 030
     Dates: start: 20040607, end: 20040607

REACTIONS (6)
  - DRY MOUTH [None]
  - EYELID PTOSIS [None]
  - GLOSSODYNIA [None]
  - HEADACHE [None]
  - SWELLING FACE [None]
  - SWOLLEN TONGUE [None]
